FAERS Safety Report 11212805 (Version 1)
Quarter: 2015Q2

REPORT INFORMATION
  Report Type: Spontaneous
  Country: US (occurrence: None)
  Receive Date: 20150622
  Receipt Date: 20150622
  Transmission Date: 20150821
  Serious: Yes (Disabling)
  Sender: FDA-Public Use
  Company Number: None

PATIENT
  Age: 63 Year
  Sex: Female
  Weight: 64.41 kg

DRUGS (13)
  1. E-RING [Concomitant]
  2. ESSENTIAL FATTY ACIDS [Concomitant]
  3. VIT D WITH CALCIUM [Concomitant]
  4. SEROQUEL [Concomitant]
     Active Substance: QUETIAPINE FUMARATE
  5. EYEBRIGHT [Concomitant]
  6. CLONAZEPAM. [Concomitant]
     Active Substance: CLONAZEPAM
  7. EFFEXOR [Suspect]
     Active Substance: VENLAFAXINE HYDROCHLORIDE
     Indication: BIPOLAR II DISORDER
     Dosage: 2 PILLS
     Route: 048
     Dates: start: 20150617
  8. ACYCLOVIR. [Concomitant]
     Active Substance: ACYCLOVIR
  9. DIGESTIVE ENZYMES [Concomitant]
     Active Substance: UNSPECIFIED INGREDIENT
  10. HERBAL STOOL SOFTNER [Concomitant]
  11. CRUSHED FLAX SEED [Concomitant]
  12. CALCIUM [Concomitant]
     Active Substance: CALCIUM
  13. SYNTHROID [Concomitant]
     Active Substance: LEVOTHYROXINE SODIUM

REACTIONS (4)
  - Vertigo [None]
  - Dizziness [None]
  - Product substitution issue [None]
  - Product quality issue [None]

NARRATIVE: CASE EVENT DATE: 20150618
